FAERS Safety Report 16233777 (Version 1)
Quarter: 2019Q2

REPORT INFORMATION
  Report Type: Spontaneous
  Country: US (occurrence: US)
  Receive Date: 20190423
  Receipt Date: 20190423
  Transmission Date: 20190711
  Serious: Yes (Other)
  Sender: FDA-Public Use
  Company Number: None

PATIENT
  Age: 37 Year
  Sex: Female
  Weight: 96.75 kg

DRUGS (3)
  1. LABATELOL [Concomitant]
  2. FENOFIBRATE. [Concomitant]
     Active Substance: FENOFIBRATE
  3. STEGLATRO [Suspect]
     Active Substance: ERTUGLIFLOZIN PIDOLATE
     Indication: DIABETES MELLITUS
     Dates: start: 20190220, end: 20190320

REACTIONS (2)
  - Vulvovaginal mycotic infection [None]
  - Pruritus [None]

NARRATIVE: CASE EVENT DATE: 20190320
